FAERS Safety Report 6315803-6 (Version None)
Quarter: 2009Q3

REPORT INFORMATION
  Report Type: 
  Country: None (occurrence: None)
  Receive Date: 20090820
  Receipt Date: 20090811
  Transmission Date: 20100115
  Serious: Yes (Hospitalization)
  Sender: FDA-Public Use
  Company Number: US-BIOGENIDEC-2009BI024127

PATIENT
  Age: 48 Year
  Sex: Female

DRUGS (1)
  1. AVONEX [Suspect]
     Indication: MULTIPLE SCLEROSIS
     Route: 030
     Dates: start: 20070816

REACTIONS (7)
  - BLOOD GLUCOSE INCREASED [None]
  - DISTURBANCE IN ATTENTION [None]
  - DIZZINESS [None]
  - HEADACHE [None]
  - HYPOAESTHESIA FACIAL [None]
  - INFLUENZA LIKE ILLNESS [None]
  - PARAESTHESIA [None]
